FAERS Safety Report 12224304 (Version 1)
Quarter: 2016Q1

REPORT INFORMATION
  Report Type: Spontaneous
  Country: DE (occurrence: DE)
  Receive Date: 20160331
  Receipt Date: 20160331
  Transmission Date: 20160526
  Serious: Yes (Other)
  Sender: FDA-Public Use
  Company Number: DE-ALLERGAN-1652232US

PATIENT
  Sex: Female
  Weight: 50 kg

DRUGS (1)
  1. ESMYA [Suspect]
     Active Substance: ULIPRISTAL ACETATE
     Indication: UTERINE LEIOMYOMA
     Dosage: UNK

REACTIONS (4)
  - Fatigue [Unknown]
  - Circulatory collapse [Unknown]
  - Nausea [Recovered/Resolved]
  - Migraine [Unknown]
